FAERS Safety Report 4744170-4 (Version None)
Quarter: 2005Q3

REPORT INFORMATION
  Report Type: 
  Country: None (occurrence: None)
  Receive Date: 20050812
  Receipt Date: 20050801
  Transmission Date: 20060218
  Serious: Yes (Other)
  Sender: FDA-Public Use
  Company Number: PHEH2005US08541

PATIENT
  Age: 55 Year
  Sex: Female

DRUGS (4)
  1. ZOMETA [Suspect]
     Indication: METASTASES TO BONE
     Dosage: 4MG Q3WK
     Route: 042
     Dates: start: 20020601
  2. AVASTIN [Concomitant]
  3. ALIMTA [Concomitant]
  4. TEMODAR [Concomitant]

REACTIONS (2)
  - ASEPTIC NECROSIS BONE [None]
  - WOUND DEBRIDEMENT [None]
